FAERS Safety Report 10361594 (Version 1)
Quarter: 2014Q3

REPORT INFORMATION
  Report Type: Spontaneous
  Country: JP (occurrence: JP)
  Receive Date: 20140805
  Receipt Date: 20140805
  Transmission Date: 20150326
  Serious: Yes (Hospitalization)
  Sender: FDA-Public Use
  Company Number: JP-UCBSA-2014007545

PATIENT
  Age: 1 Year
  Sex: Female

DRUGS (2)
  1. XYZAL [Suspect]
     Active Substance: LEVOCETIRIZINE DIHYDROCHLORIDE
     Dosage: SYRUP 2.5 ML, 2X/DAY (BID)
     Route: 048
     Dates: start: 20140714, end: 20140718
  2. XYZAL [Suspect]
     Active Substance: LEVOCETIRIZINE DIHYDROCHLORIDE
     Dosage: AT 7.20 PM TOOK 20 ML.
     Dates: start: 20140718, end: 20140718

REACTIONS (3)
  - Heart rate decreased [Recovered/Resolved]
  - Off label use [None]
  - Overdose [Unknown]

NARRATIVE: CASE EVENT DATE: 20140718
